FAERS Safety Report 6444913-8 (Version None)
Quarter: 2009Q4

REPORT INFORMATION
  Report Type: 
  Country: None (occurrence: None)
  Receive Date: 20091118
  Receipt Date: 20091106
  Transmission Date: 20100525
  Serious: Yes (Hospitalization)
  Sender: FDA-Public Use
  Company Number: IT-CELGENEUS-083-50794-09110491

PATIENT
  Sex: Female
  Weight: 52 kg

DRUGS (3)
  1. VIDAZA [Suspect]
     Route: 058
     Dates: start: 20090921, end: 20090925
  2. VIDAZA [Suspect]
     Route: 058
     Dates: start: 20091102
  3. DESFERAL [Concomitant]
     Route: 058
     Dates: start: 20090403

REACTIONS (1)
  - BRONCHITIS [None]
